FAERS Safety Report 9691384 (Version 2)
Quarter: 2013Q4

REPORT INFORMATION
  Report Type: Spontaneous
  Country: DK (occurrence: DK)
  Receive Date: 20131115
  Receipt Date: 20131211
  Transmission Date: 20140711
  Serious: Yes (Other)
  Sender: FDA-Public Use
  Company Number: DK-WATSON-2013-20948

PATIENT
  Age: 50 Year
  Sex: Male

DRUGS (2)
  1. SILDENAFIL (UNKNOWN) [Suspect]
     Indication: SEXUAL DYSFUNCTION
     Dosage: 100 MG, TOTAL
     Route: 048
     Dates: start: 2012, end: 2012
  2. SILDENAFIL (UNKNOWN) [Suspect]
     Indication: INTENTIONAL DRUG MISUSE

REACTIONS (2)
  - Priapism [Recovered/Resolved with Sequelae]
  - Intentional drug misuse [Unknown]
